FAERS Safety Report 23441544 (Version 2)
Quarter: 2024Q1

REPORT INFORMATION
  Report Type: Spontaneous
  Country: BG (occurrence: BG)
  Receive Date: 20240125
  Receipt Date: 20240325
  Transmission Date: 20240409
  Serious: Yes (Other)
  Sender: FDA-Public Use
  Company Number: BG-ROCHE-2647773

PATIENT
  Age: 53 Year
  Sex: Female
  Weight: 54 kg

DRUGS (25)
  1. CAPECITABINE [Suspect]
     Active Substance: CAPECITABINE
     Indication: HER2 positive breast cancer
     Route: 048
     Dates: start: 20190530, end: 20191125
  2. HERCEPTIN [Suspect]
     Active Substance: TRASTUZUMAB
     Indication: HER2 positive breast cancer
     Route: 042
     Dates: start: 20170804, end: 20170804
  3. HERCEPTIN [Suspect]
     Active Substance: TRASTUZUMAB
     Indication: HER2 positive breast cancer
     Route: 042
     Dates: start: 20170824, end: 20180808
  4. HERCEPTIN [Suspect]
     Active Substance: TRASTUZUMAB
     Indication: HER2 positive breast cancer
     Route: 042
     Dates: start: 20181219, end: 20191111
  5. HERCEPTIN [Suspect]
     Active Substance: TRASTUZUMAB
     Indication: HER2 positive breast cancer
     Route: 042
     Dates: start: 20200218, end: 20201009
  6. KADCYLA [Suspect]
     Active Substance: ADO-TRASTUZUMAB EMTANSINE
     Indication: HER2 positive breast cancer
     Route: 042
     Dates: start: 20180830, end: 201811
  7. PERJETA [Suspect]
     Active Substance: PERTUZUMAB
     Indication: HER2 positive breast cancer
     Route: 042
     Dates: start: 20170804, end: 20170804
  8. PERJETA [Suspect]
     Active Substance: PERTUZUMAB
     Indication: HER2 positive breast cancer
     Route: 042
     Dates: start: 20170824, end: 20180808
  9. PERJETA [Suspect]
     Active Substance: PERTUZUMAB
     Indication: HER2 positive breast cancer
     Route: 042
     Dates: start: 20190404, end: 20190624
  10. TAXOTERE [Suspect]
     Active Substance: DOCETAXEL
     Indication: HER2 positive breast cancer
     Route: 042
     Dates: start: 20170804, end: 201711
  11. TAXOTERE [Suspect]
     Active Substance: DOCETAXEL
     Indication: HER2 positive breast cancer
     Route: 042
     Dates: start: 20181219, end: 20190503
  12. XGEVA [Suspect]
     Active Substance: DENOSUMAB
     Indication: HER2 positive breast cancer
     Route: 058
     Dates: start: 20181219
  13. TYKERB [Suspect]
     Active Substance: LAPATINIB DITOSYLATE
     Indication: HER2 positive breast cancer
     Route: 048
     Dates: start: 20191125, end: 20191125
  14. GOSERELIN [Suspect]
     Active Substance: GOSERELIN
     Indication: HER2 positive breast cancer
     Route: 058
     Dates: start: 201610, end: 201706
  15. NOLVADEX [Suspect]
     Active Substance: TAMOXIFEN CITRATE
     Indication: HER2 positive breast cancer
     Route: 048
     Dates: start: 201610, end: 201706
  16. NAVELBINE [Suspect]
     Active Substance: VINORELBINE TARTRATE
     Route: 042
     Dates: start: 20200218, end: 20201009
  17. VANCOMYCIN [Concomitant]
     Active Substance: VANCOMYCIN
     Indication: Gastrointestinal bacterial infection
     Route: 048
     Dates: start: 20200512, end: 20200528
  18. METRONIDAZOLE [Concomitant]
     Active Substance: METRONIDAZOLE
     Indication: Gastrointestinal bacterial infection
     Route: 048
     Dates: start: 20200512, end: 20200518
  19. FAMOTIDINE [Concomitant]
     Active Substance: FAMOTIDINE
     Indication: Gastrointestinal bacterial infection
     Route: 042
     Dates: start: 20200512, end: 20200528
  20. MANNITOL [Concomitant]
     Active Substance: MANNITOL
     Indication: Paraparesis
     Route: 042
     Dates: start: 20200421, end: 20200508
  21. RINGERS SOLUTION [Concomitant]
     Active Substance: CALCIUM CHLORIDE\POTASSIUM CHLORIDE\SODIUM CHLORIDE
     Indication: Paraparesis
     Route: 042
     Dates: start: 20200421, end: 20200508
  22. GENTAMICIN [Concomitant]
     Active Substance: GENTAMICIN
     Indication: Paraparesis
     Route: 048
     Dates: start: 20200421, end: 20200508
  23. MORPHINE [Concomitant]
     Active Substance: MORPHINE
  24. FENTANYL CITRATE [Concomitant]
     Active Substance: FENTANYL CITRATE
  25. XGEVA [Concomitant]
     Active Substance: DENOSUMAB
     Indication: Metastases to spine
     Route: 058
     Dates: start: 201808, end: 20201009

REACTIONS (4)
  - Spinal compression fracture [Recovered/Resolved]
  - Gastrointestinal bacterial infection [Recovered/Resolved]
  - Paraparesis [Recovered/Resolved]
  - Pelvic pain [Not Recovered/Not Resolved]

NARRATIVE: CASE EVENT DATE: 20191201
